FAERS Safety Report 7219495-3 (Version None)
Quarter: 2011Q1

REPORT INFORMATION
  Report Type: 
  Country: None (occurrence: None)
  Receive Date: 20110111
  Receipt Date: 20110103
  Transmission Date: 20110831
  Serious: Yes (Hospitalization)
  Sender: FDA-Public Use
  Company Number: FR-SANOFI-AVENTIS-2011SA000798

PATIENT
  Age: 16 Year
  Sex: Female

DRUGS (10)
  1. RIFATER [Suspect]
     Route: 048
     Dates: start: 20100630, end: 20100830
  2. CORTANCYL [Suspect]
     Indication: ASTHMA
     Route: 048
     Dates: start: 20101213, end: 20101218
  3. CLARITIN [Suspect]
     Indication: ASTHMA
     Dosage: DOSE:1 UNIT(S)
     Route: 048
     Dates: start: 20101213
  4. BUDESONIDE/FORMOTEROL [Concomitant]
     Indication: ASTHMA
  5. ACETAMINOPHEN [Suspect]
     Route: 048
  6. IBUPROFEN [Suspect]
     Route: 048
     Dates: start: 20101117, end: 20101122
  7. ALBUTEROL [Concomitant]
     Indication: ASTHMA
  8. CLARITIN [Suspect]
     Dates: start: 20090101, end: 20101213
  9. RIFAMPIN AND ISONIAZID [Suspect]
     Route: 048
     Dates: start: 20100909, end: 20101217
  10. SOLUPRED [Concomitant]
     Indication: ASTHMA
     Dates: start: 20100601

REACTIONS (1)
  - AGRANULOCYTOSIS [None]
